FAERS Safety Report 9779614 (Version 2)
Quarter: 2013Q4

REPORT INFORMATION
  Report Type: Spontaneous
  Country: US (occurrence: US)
  Receive Date: 20131223
  Receipt Date: 20131231
  Transmission Date: 20140711
  Serious: No
  Sender: FDA-Public Use
  Company Number: US-PFIZER INC-2013363100

PATIENT
  Age: 52 Year
  Sex: Male

DRUGS (11)
  1. EFFEXOR XR [Suspect]
     Indication: DEPRESSION
     Dosage: 37.5 MG, 1X/DAY
     Dates: start: 20130212
  2. EFFEXOR [Suspect]
     Dosage: 150 MG, 1X/DAY
     Dates: start: 20131023, end: 2013
  3. EFFEXOR [Suspect]
     Dosage: UNK
     Dates: start: 20131213
  4. RANITIDINE [Concomitant]
     Dosage: UNK
  5. XANAX [Concomitant]
     Dosage: UNK
  6. PROVIGIL [Concomitant]
     Dosage: UNK
  7. ATENOLOL [Concomitant]
     Dosage: UNK
  8. LASIX [Concomitant]
     Dosage: UNK
  9. DILAUDID [Concomitant]
     Dosage: UNK
  10. NORTRIPTYLINE [Concomitant]
     Dosage: 50 MG, 2X/DAY
  11. OMEPRAZOLE [Concomitant]
     Dosage: UNK

REACTIONS (2)
  - Drug hypersensitivity [Unknown]
  - Nausea [Unknown]
